FAERS Safety Report 23351005 (Version 1)
Quarter: 2023Q4

REPORT INFORMATION
  Report Type: Spontaneous
  Country: AU (occurrence: AU)
  Receive Date: 20231229
  Receipt Date: 20231229
  Transmission Date: 20240109
  Serious: Yes (Other)
  Sender: FDA-Public Use
  Company Number: AU-CIPLA (EU) LIMITED-2023AU08434

PATIENT

DRUGS (3)
  1. LENALIDOMIDE [Suspect]
     Active Substance: LENALIDOMIDE
     Dosage: 25 MILLIGRAM, QD (START DATE 10-DEC-2021; END DATE: 27-MAR-2023)
     Route: 050
  2. BORTEZOMIB [Suspect]
     Active Substance: BORTEZOMIB
     Dosage: UNK (START DATE: 10-DEC-2021, STOP DATE: 27-MAR-2023)
     Route: 050
  3. DEXAMETHASONE [Suspect]
     Active Substance: DEXAMETHASONE
     Dosage: 20 MILLIGRAM ONCE A WEEK (START DATE: 10-DEC-2021, STOP DATE: 27-MAR-2023)
     Route: 050

REACTIONS (1)
  - Exposure via body fluid [Unknown]
